FAERS Safety Report 8846675 (Version 2)
Quarter: 2012Q4

REPORT INFORMATION
  Report Type: 
  Country: US (occurrence: US)
  Receive Date: 20121017
  Receipt Date: 20121026
  Transmission Date: 20130627
  Serious: Yes (Hospitalization)
  Sender: FDA-Public Use
  Company Number: US-ELI_LILLY_AND_COMPANY-US201210002762

PATIENT
  Sex: Male

DRUGS (5)
  1. HUMALOG LISPRO [Suspect]
     Indication: TYPE 2 DIABETES MELLITUS
     Dosage: UNK, prn
     Dates: start: 1992
  2. HUMALOG LISPRO [Suspect]
     Dosage: UNK, prn
  3. LANTUS [Concomitant]
     Dosage: UNK, unknown
  4. LANTUS [Concomitant]
     Dosage: 12 u, each evening
  5. METFORMIN [Concomitant]
     Dosage: UNK, qd

REACTIONS (5)
  - Pneumonia [Recovered/Resolved]
  - Foot fracture [Recovered/Resolved with Sequelae]
  - Congenital foot malformation [Recovering/Resolving]
  - Blood glucose increased [Unknown]
  - Blood glucose decreased [Unknown]
